FAERS Safety Report 7263733-8 (Version None)
Quarter: 2011Q1

REPORT INFORMATION
  Report Type: 
  Country: None (occurrence: None)
  Receive Date: 20110130
  Receipt Date: 20101216
  Transmission Date: 20110831
  Serious: No
  Sender: FDA-Public Use
  Company Number: US-ABBOTT-10P-163-0692265-00

PATIENT
  Age: 25 Year
  Sex: Female

DRUGS (4)
  1. DIFLUCAN [Concomitant]
     Indication: FUNGAL INFECTION
  2. PREDNISONE [Concomitant]
     Indication: PRODUCT USED FOR UNKNOWN INDICATION
  3. HUMIRA [Suspect]
     Indication: CROHN'S DISEASE
     Dates: start: 20101117
  4. DIFLUCAN [Concomitant]
     Indication: OESOPHAGEAL INFECTION

REACTIONS (7)
  - INJECTION SITE REACTION [None]
  - INJECTION SITE PAPULE [None]
  - INJECTION SITE PRURITUS [None]
  - INJECTION SITE ERYTHEMA [None]
  - INJECTION SITE SWELLING [None]
  - INJECTION SITE INDURATION [None]
  - INJECTION SITE PAIN [None]
